FAERS Safety Report 13460001 (Version 1)
Quarter: 2017Q2

REPORT INFORMATION
  Report Type: Spontaneous
  Country: US (occurrence: US)
  Receive Date: 20170420
  Receipt Date: 20170420
  Transmission Date: 20170830
  Serious: No
  Sender: FDA-Public Use
  Company Number: US-TEVA-725610USA

PATIENT
  Age: 57 Year
  Sex: Female

DRUGS (1)
  1. ZOLPIDEM TABLET 10MG [Suspect]
     Active Substance: ZOLPIDEM\ZOLPIDEM TARTRATE
     Indication: INSOMNIA
     Dates: start: 20161210

REACTIONS (4)
  - Drug ineffective [Unknown]
  - Drug dispensing error [Unknown]
  - Insomnia [Unknown]
  - Extra dose administered [Unknown]

NARRATIVE: CASE EVENT DATE: 20161210
